FAERS Safety Report 4991276-0 (Version None)
Quarter: 2006Q2

REPORT INFORMATION
  Report Type: 
  Country: None (occurrence: None)
  Receive Date: 20060428
  Receipt Date: 20060413
  Transmission Date: 20061013
  Serious: Yes (Hospitalization)
  Sender: FDA-Public Use
  Company Number: 2006BI004761

PATIENT
  Age: 41 Year
  Sex: Male
  Weight: 52.1637 kg

DRUGS (3)
  1. AVONEX [Suspect]
     Indication: MULTIPLE SCLEROSIS
     Dosage: 30 UG; QW; IM
     Route: 030
     Dates: start: 20050315
  2. VALIUM [Concomitant]
  3. MORPHINE [Concomitant]

REACTIONS (5)
  - CONDITION AGGRAVATED [None]
  - FALL [None]
  - JOINT INJURY [None]
  - MULTIPLE SCLEROSIS [None]
  - STAPHYLOCOCCAL INFECTION [None]
